FAERS Safety Report 5000490-X (Version None)
Quarter: 2006Q2

REPORT INFORMATION
  Report Type: 
  Country: None (occurrence: None)
  Receive Date: 20060512
  Receipt Date: 20060503
  Transmission Date: 20061013
  Serious: Yes (Hospitalization)
  Sender: FDA-Public Use
  Company Number: FR-JNJFOC-20060500975

PATIENT
  Age: 75 Year
  Sex: Male
  Weight: 90 kg

DRUGS (16)
  1. REMICADE [Suspect]
     Route: 042
  2. REMICADE [Suspect]
     Route: 042
  3. REMICADE [Suspect]
     Indication: ANKYLOSING SPONDYLITIS
     Route: 042
  4. INIPOMP [Concomitant]
     Route: 065
  5. GELOX [Concomitant]
     Route: 065
  6. GELOX [Concomitant]
     Route: 065
  7. GELOX [Concomitant]
     Route: 065
  8. LIPANTHYL [Concomitant]
     Route: 065
  9. ASPIRIN [Concomitant]
     Route: 065
  10. TAMIK [Concomitant]
     Route: 065
  11. METHOTREXATE [Concomitant]
     Indication: ANKYLOSING SPONDYLITIS
     Route: 065
  12. NUREFLEX [Concomitant]
     Indication: ANKYLOSING SPONDYLITIS
     Route: 065
  13. LAMALINE [Concomitant]
     Route: 065
  14. LAMALINE [Concomitant]
     Route: 065
  15. LAMALINE [Concomitant]
     Route: 065
  16. LAMALINE [Concomitant]
     Indication: ANKYLOSING SPONDYLITIS
     Route: 065

REACTIONS (5)
  - ABDOMINAL PAIN UPPER [None]
  - DYSAESTHESIA [None]
  - FEELING HOT [None]
  - FLUSHING [None]
  - INFUSION RELATED REACTION [None]
